FAERS Safety Report 9182416 (Version 1)
Quarter: 2013Q1

REPORT INFORMATION
  Report Type: Spontaneous
  Country: US (occurrence: US)
  Receive Date: 20130322
  Receipt Date: 20130322
  Transmission Date: 20140127
  Serious: Yes (Other)
  Sender: FDA-Public Use
  Company Number: US-BRISTOL-MYERS SQUIBB COMPANY-16741837

PATIENT
  Age: 59 Year
  Sex: Male

DRUGS (3)
  1. ERBITUX [Suspect]
     Indication: HEAD AND NECK CANCER
     Dosage: LAST DOSE: 28JUN2012
     Dates: start: 20111222
  2. CARBOPLATIN [Suspect]
  3. 5-FLUOROURACIL [Suspect]

REACTIONS (5)
  - Malignant neoplasm progression [Unknown]
  - Skin mass [Unknown]
  - Skin infection [Unknown]
  - Alopecia [Unknown]
  - Rash [Unknown]
